FAERS Safety Report 15929303 (Version 9)
Quarter: 2020Q1

REPORT INFORMATION
  Report Type: Report from Study
  Country: CA (occurrence: CA)
  Receive Date: 20190206
  Receipt Date: 20200207
  Transmission Date: 20200409
  Serious: Yes (Death, Hospitalization, Other)
  Sender: FDA-Public Use
  Company Number: CA-ACTELION-A-US2019-185668

PATIENT
  Age: 72 Year
  Sex: Female

DRUGS (21)
  1. OPSUMIT [Suspect]
     Active Substance: MACITENTAN
     Dosage: UNK
     Route: 048
  2. VITAMIN D [Concomitant]
     Active Substance: VITAMIN D NOS
  3. LOSEC [Concomitant]
     Active Substance: OMEPRAZOLE
  4. LASIX [Concomitant]
     Active Substance: FUROSEMIDE
  5. ASA [Concomitant]
     Active Substance: ASPIRIN
  6. RISEDRONATE [Concomitant]
     Active Substance: RISEDRONATE SODIUM
  7. OXYGEN. [Concomitant]
     Active Substance: OXYGEN
     Dosage: 1.5-2 L, PER MIN
  8. CARIPUL [Suspect]
     Active Substance: EPOPROSTENOL
     Indication: PULMONARY ARTERIAL HYPERTENSION
     Dosage: 3 NG
     Route: 042
     Dates: start: 20180110
  9. UPTRAVI [Suspect]
     Active Substance: SELEXIPAG
     Indication: PULMONARY ARTERIAL HYPERTENSION
     Dosage: UNK
     Route: 048
     Dates: start: 20180522
  10. SYNTHROID [Concomitant]
     Active Substance: LEVOTHYROXINE SODIUM
  11. CARIPUL [Suspect]
     Active Substance: EPOPROSTENOL
     Dosage: 1.5 NG, UNK
     Route: 042
     Dates: start: 20180110
  12. CARIPUL [Suspect]
     Active Substance: EPOPROSTENOL
     Dosage: 3000 NG/ML
     Route: 042
  13. OPSUMIT [Suspect]
     Active Substance: MACITENTAN
     Indication: PULMONARY ARTERIAL HYPERTENSION
     Dosage: 10 MG
     Route: 048
     Dates: start: 20180522
  14. CARIPUL [Suspect]
     Active Substance: EPOPROSTENOL
     Dosage: 8 NG
     Route: 042
     Dates: start: 20180110
  15. CARIPUL [Suspect]
     Active Substance: EPOPROSTENOL
     Dosage: 1.5 MG/24 HOURS
     Route: 042
     Dates: start: 20180110
  16. CRESTOR [Concomitant]
     Active Substance: ROSUVASTATIN CALCIUM
  17. CALCIUM [Concomitant]
     Active Substance: CALCIUM
  18. CELEBREX [Concomitant]
     Active Substance: CELECOXIB
  19. PLAVIX [Concomitant]
     Active Substance: CLOPIDOGREL BISULFATE
  20. ADCIRCA [Concomitant]
     Active Substance: TADALAFIL
  21. ELAVIL [Concomitant]
     Active Substance: AMITRIPTYLINE HYDROCHLORIDE

REACTIONS (24)
  - Mineral supplementation [Unknown]
  - Death [Fatal]
  - Therapy non-responder [Not Recovered/Not Resolved]
  - Peripheral coldness [Not Recovered/Not Resolved]
  - Syncope [Not Recovered/Not Resolved]
  - Fatigue [Not Recovered/Not Resolved]
  - Tremor [Not Recovered/Not Resolved]
  - Rhinorrhoea [Not Recovered/Not Resolved]
  - Haematochezia [Not Recovered/Not Resolved]
  - Feeling abnormal [Unknown]
  - Cough [Unknown]
  - Sinus congestion [Not Recovered/Not Resolved]
  - Haemoglobin decreased [Not Recovered/Not Resolved]
  - Blood pressure decreased [Not Recovered/Not Resolved]
  - Nervousness [Not Recovered/Not Resolved]
  - Dyspnoea [Not Recovered/Not Resolved]
  - Aural polyp [Not Recovered/Not Resolved]
  - Hospitalisation [Not Recovered/Not Resolved]
  - Oxygen saturation decreased [Not Recovered/Not Resolved]
  - Malaise [Not Recovered/Not Resolved]
  - Tinnitus [Not Recovered/Not Resolved]
  - Transfusion [Not Recovered/Not Resolved]
  - Tooth disorder [Not Recovered/Not Resolved]
  - Paraesthesia [Not Recovered/Not Resolved]

NARRATIVE: CASE EVENT DATE: 20191105
